FAERS Safety Report 18397900 (Version 1)
Quarter: 2020Q4

REPORT INFORMATION
  Report Type: Report from Study
  Country: US (occurrence: US)
  Receive Date: 20201019
  Receipt Date: 20201019
  Transmission Date: 20210114
  Serious: Yes (Other)
  Sender: FDA-Public Use
  Company Number: US-MYLANLABS-2020M1087013

PATIENT
  Sex: Female

DRUGS (3)
  1. GILTERITINIB [Interacting]
     Active Substance: GILTERITINIB
     Indication: ACUTE MYELOID LEUKAEMIA (IN REMISSION)
     Dosage: 120 MILLIGRAM, QD (40 MG X 3)
     Route: 048
     Dates: end: 20181231
  2. GILTERITINIB [Interacting]
     Active Substance: GILTERITINIB
     Dosage: 200 MILLIGRAM, QD
     Route: 048
     Dates: start: 20190115
  3. METHADONE [Suspect]
     Active Substance: METHADONE HYDROCHLORIDE
     Indication: PRODUCT USED FOR UNKNOWN INDICATION
     Dosage: UNK

REACTIONS (2)
  - Acute myeloid leukaemia [Unknown]
  - Drug interaction [Unknown]
